FAERS Safety Report 6049712-7 (Version None)
Quarter: 2009Q1

REPORT INFORMATION
  Report Type: 
  Country: None (occurrence: None)
  Receive Date: 20090121
  Receipt Date: 20080103
  Transmission Date: 20090719
  Serious: No
  Sender: FDA-Public Use
  Company Number: US-WYE-H00780907

PATIENT
  Age: 53 Year
  Sex: Female
  Weight: 73.55 kg

DRUGS (3)
  1. PREMPRO [Suspect]
     Indication: HOT FLUSH
     Dosage: 0.45MG/1.5MG DAILY, ORAL
     Route: 048
     Dates: start: 20071008, end: 20071016
  2. LEXAPRO [Concomitant]
  3. COZAAR [Concomitant]

REACTIONS (5)
  - ABNORMAL BEHAVIOUR [None]
  - DEPRESSED MOOD [None]
  - ENERGY INCREASED [None]
  - MOOD ALTERED [None]
  - THERAPEUTIC RESPONSE UNEXPECTED [None]
